FAERS Safety Report 6137165-X (Version None)
Quarter: 2009Q1

REPORT INFORMATION
  Report Type: 
  Country: None (occurrence: None)
  Receive Date: 20090330
  Receipt Date: 20090324
  Transmission Date: 20090719
  Serious: Yes (Hospitalization, Other)
  Sender: FDA-Public Use
  Company Number: US-CELGENEUS-163-20785-09011619

PATIENT
  Sex: Male

DRUGS (1)
  1. THALOMID [Suspect]
     Indication: MYELODYSPLASTIC SYNDROME
     Route: 048
     Dates: start: 20081124

REACTIONS (7)
  - DISEASE PROGRESSION [None]
  - EYE INFECTION [None]
  - EYE INJURY [None]
  - LEUKAEMIA [None]
  - METASTASES TO CENTRAL NERVOUS SYSTEM [None]
  - RASH ERYTHEMATOUS [None]
  - SKIN DISCOLOURATION [None]
